FAERS Safety Report 14539767 (Version 2)
Quarter: 2018Q2

REPORT INFORMATION
  Report Type: Spontaneous
  Country: ID (occurrence: ID)
  Receive Date: 20180216
  Receipt Date: 20180402
  Transmission Date: 20180711
  Serious: Yes (Death, Hospitalization)
  Sender: FDA-Public Use
  Company Number: ID-BAYER-2018-027233

PATIENT
  Age: 44 Year
  Sex: Male

DRUGS (1)
  1. NEXAVAR [Suspect]
     Active Substance: SORAFENIB
     Indication: HEPATOCELLULAR CARCINOMA
     Dosage: DAILY DOSE 400 MG
     Route: 048
     Dates: start: 20180124, end: 20180205

REACTIONS (9)
  - Nausea [None]
  - Diarrhoea [Fatal]
  - Hypophagia [Fatal]
  - Cold sweat [None]
  - Decreased appetite [None]
  - Asthenia [None]
  - Anxiety [Fatal]
  - Vomiting [None]
  - Dyspnoea [Fatal]

NARRATIVE: CASE EVENT DATE: 201801
